FAERS Safety Report 6960383-5 (Version None)
Quarter: 2010Q3

REPORT INFORMATION
  Report Type: 
  Country: None (occurrence: None)
  Receive Date: 20100823
  Receipt Date: 20100709
  Transmission Date: 20110219
  Serious: No
  Sender: FDA-Public Use
  Company Number: 015396

PATIENT
  Sex: Female
  Weight: 99.8 kg

DRUGS (1)
  1. CIMZIA [Suspect]
     Indication: CROHN'S DISEASE
     Dosage: (400 MG 1X/MONTH SUBCUTANEOUS)
     Route: 058
     Dates: start: 20091001

REACTIONS (5)
  - BACK PAIN [None]
  - DIARRHOEA [None]
  - FATIGUE [None]
  - INJECTION SITE REACTION [None]
  - PAIN IN EXTREMITY [None]
